FAERS Safety Report 18373854 (Version 1)
Quarter: 2020Q4

REPORT INFORMATION
  Report Type: Spontaneous
  Country: US (occurrence: US)
  Receive Date: 20201013
  Receipt Date: 20201013
  Transmission Date: 20210114
  Serious: Yes (Death, Other)
  Sender: FDA-Public Use
  Company Number: US-SA-2020SA282362

PATIENT

DRUGS (2)
  1. LEMTRADA [Suspect]
     Active Substance: ALEMTUZUMAB
     Dosage: UNK, QD
     Dates: start: 20170519, end: 20170521
  2. LEMTRADA [Suspect]
     Active Substance: ALEMTUZUMAB
     Dosage: UNK
     Dates: start: 20160328

REACTIONS (4)
  - Platelet count decreased [Fatal]
  - Condition aggravated [Fatal]
  - Immune thrombocytopenia [Fatal]
  - Contusion [Fatal]

NARRATIVE: CASE EVENT DATE: 201709
